FAERS Safety Report 8568213 (Version 4)
Quarter: 2012Q4

REPORT INFORMATION
  Report Type: 
  Country: JP (occurrence: JP)
  Receive Date: 20120518
  Receipt Date: 20121016
  Transmission Date: 20130627
  Serious: Yes (Hospitalization)
  Sender: FDA-Public Use
  Company Number: JP-ELI_LILLY_AND_COMPANY-JP201202006110

PATIENT
  Age: 72 Year
  Sex: Female

DRUGS (3)
  1. FORTEO [Suspect]
     Indication: BONE DENSITY DECREASED
     Dosage: UNK, each evening
     Route: 058
     Dates: start: 20120203
  2. FORTEO [Suspect]
     Dosage: UNK
     Route: 058
     Dates: end: 20120427
  3. FORTEO [Suspect]
     Dosage: UNK
     Route: 058
     Dates: start: 20120507, end: 20121001

REACTIONS (11)
  - Pyelonephritis acute [Unknown]
  - Myalgia [Recovered/Resolved]
  - Abdominal discomfort [Unknown]
  - Pharyngeal oedema [Not Recovered/Not Resolved]
  - Odynophagia [Not Recovered/Not Resolved]
  - Pyrexia [Not Recovered/Not Resolved]
  - Nasopharyngitis [Not Recovered/Not Resolved]
  - Dysphonia [Not Recovered/Not Resolved]
  - Posture abnormal [Unknown]
  - Muscular weakness [Unknown]
  - Palpitations [Recovered/Resolved]
